FAERS Safety Report 23064498 (Version 12)
Quarter: 2024Q1

REPORT INFORMATION
  Report Type: Other
  Country: US (occurrence: None)
  Receive Date: 20231013
  Receipt Date: 20240316
  Transmission Date: 20240410
  Serious: Yes (Hospitalization, Other)
  Sender: FDA-Public Use
  Company Number: US-ROCHE-3391878

PATIENT
  Age: 36 Year
  Sex: Female
  Weight: 113.95 kg

DRUGS (7)
  1. OCREVUS [Suspect]
     Active Substance: OCRELIZUMAB
     Indication: Relapsing-remitting multiple sclerosis
     Dosage: RECEIVED SECOND DOSE OF OCREVUS ON 12/JUN/2023?THEN SUBSEQUENTLY 600 MG EVERY 6 MONTHS?LAST DOSE WAS
     Route: 042
     Dates: start: 20230606
  2. OCREVUS [Suspect]
     Active Substance: OCRELIZUMAB
     Route: 042
     Dates: start: 2023
  3. ELIQUIS [Suspect]
     Active Substance: APIXABAN
     Indication: Thrombosis
     Route: 048
     Dates: start: 202308
  4. TIZANIDINE [Concomitant]
     Active Substance: TIZANIDINE
     Indication: Musculoskeletal stiffness
     Route: 048
  5. LEVOTHYROXINE [Concomitant]
     Active Substance: LEVOTHYROXINE\LEVOTHYROXINE SODIUM
     Route: 048
  6. BACLOFEN [Concomitant]
     Active Substance: BACLOFEN
     Indication: Muscle spasms
     Route: 048
  7. TYLENOL [Concomitant]
     Active Substance: ACETAMINOPHEN
     Indication: Pain
     Route: 048

REACTIONS (36)
  - Foot fracture [Not Recovered/Not Resolved]
  - Ovarian vein thrombosis [Not Recovered/Not Resolved]
  - Dyspnoea [Recovered/Resolved]
  - Pulmonary thrombosis [Unknown]
  - Thrombosis [Not Recovered/Not Resolved]
  - Urinary tract infection [Unknown]
  - Pruritus [Not Recovered/Not Resolved]
  - Dry eye [Recovering/Resolving]
  - Dysstasia [Not Recovered/Not Resolved]
  - Eye irritation [Recovered/Resolved]
  - Cough [Not Recovered/Not Resolved]
  - Arthralgia [Not Recovered/Not Resolved]
  - Pain in extremity [Not Recovered/Not Resolved]
  - Off label use [Unknown]
  - Amnesia [Not Recovered/Not Resolved]
  - Discomfort [Not Recovered/Not Resolved]
  - Neck pain [Unknown]
  - Joint lock [Not Recovered/Not Resolved]
  - Joint stiffness [Not Recovered/Not Resolved]
  - Head discomfort [Not Recovered/Not Resolved]
  - Restless legs syndrome [Not Recovered/Not Resolved]
  - Urticaria [Recovering/Resolving]
  - Asthenia [Unknown]
  - Weight increased [Not Recovered/Not Resolved]
  - Urinary incontinence [Not Recovered/Not Resolved]
  - Urine odour abnormal [Not Recovered/Not Resolved]
  - Mental impairment [Not Recovered/Not Resolved]
  - Weight decreased [Not Recovered/Not Resolved]
  - Flushing [Unknown]
  - Feeling cold [Not Recovered/Not Resolved]
  - Hypoaesthesia [Not Recovered/Not Resolved]
  - Pain [Not Recovered/Not Resolved]
  - Muscle spasms [Not Recovered/Not Resolved]
  - Myalgia [Not Recovered/Not Resolved]
  - Eye pruritus [Not Recovered/Not Resolved]
  - Lacrimation increased [Not Recovered/Not Resolved]

NARRATIVE: CASE EVENT DATE: 20230606
